FAERS Safety Report 16789297 (Version 1)
Quarter: 2019Q3

REPORT INFORMATION
  Report Type: Spontaneous
  Country: PL (occurrence: PL)
  Receive Date: 20190910
  Receipt Date: 20190910
  Transmission Date: 20191005
  Serious: Yes (Other)
  Sender: FDA-Public Use
  Company Number: PL-ROCHE-2406640

PATIENT
  Age: 12 Year
  Sex: Female

DRUGS (1)
  1. ACTILYSE [Suspect]
     Active Substance: ALTEPLASE
     Indication: THROMBOSIS
     Dosage: 0.3 MG/KG/H (1 IN 1 ONCE)
     Route: 042

REACTIONS (2)
  - Subarachnoid haemorrhage [Unknown]
  - Cerebral salt-wasting syndrome [Recovering/Resolving]
